FAERS Safety Report 12521781 (Version 1)
Quarter: 2016Q3

REPORT INFORMATION
  Report Type: Report from Study
  Country: DE (occurrence: DE)
  Receive Date: 20160701
  Receipt Date: 20160701
  Transmission Date: 20161109
  Serious: Yes (Hospitalization)
  Sender: FDA-Public Use
  Company Number: DE-ABBVIE-16P-062-1641802-00

PATIENT
  Age: 1 Year
  Sex: Female
  Weight: 9 kg

DRUGS (11)
  1. SYNAGIS [Suspect]
     Active Substance: PALIVIZUMAB
     Route: 030
     Dates: start: 20151102, end: 20151102
  2. OMEPRAZOL [Concomitant]
     Active Substance: OMEPRAZOLE
     Indication: PRODUCT USED FOR UNKNOWN INDICATION
     Route: 065
  3. SYNAGIS [Suspect]
     Active Substance: PALIVIZUMAB
     Route: 030
     Dates: start: 20160309, end: 20160309
  4. ASPIRIN. [Concomitant]
     Active Substance: ASPIRIN
     Indication: PRODUCT USED FOR UNKNOWN INDICATION
     Route: 065
  5. SALBUTAMOL [Concomitant]
     Active Substance: ALBUTEROL
     Indication: PRODUCT USED FOR UNKNOWN INDICATION
     Dosage: 3 DROPS IN 2 L SODIUM CHLORIDE 0.9%
     Route: 055
  6. SYNAGIS [Suspect]
     Active Substance: PALIVIZUMAB
     Route: 030
     Dates: start: 20151214, end: 20151214
  7. SYNAGIS [Suspect]
     Active Substance: PALIVIZUMAB
     Route: 030
     Dates: start: 20160414, end: 20160414
  8. SYNAGIS [Suspect]
     Active Substance: PALIVIZUMAB
     Route: 030
     Dates: start: 20160121, end: 20160121
  9. SYNAGIS [Suspect]
     Active Substance: PALIVIZUMAB
     Indication: PREMATURE BABY
     Route: 030
     Dates: start: 20151001, end: 20151001
  10. MONTELUKAST [Concomitant]
     Active Substance: MONTELUKAST SODIUM
     Indication: PRODUCT USED FOR UNKNOWN INDICATION
     Route: 065
  11. SILDENAFIL. [Concomitant]
     Active Substance: SILDENAFIL
     Indication: PRODUCT USED FOR UNKNOWN INDICATION
     Route: 065

REACTIONS (9)
  - Viral infection [Unknown]
  - Dyspnoea [Recovering/Resolving]
  - Bronchitis [Unknown]
  - Respiratory fatigue [Unknown]
  - General physical health deterioration [Recovering/Resolving]
  - Obstruction [Recovering/Resolving]
  - Pneumonia [Recovered/Resolved]
  - Respiratory disorder [Unknown]
  - Oxygen consumption increased [Unknown]

NARRATIVE: CASE EVENT DATE: 20160331
